FAERS Safety Report 5831663-1 (Version None)
Quarter: 2008Q3

REPORT INFORMATION
  Report Type: 
  Country: None (occurrence: None)
  Receive Date: 20080730
  Receipt Date: 20080714
  Transmission Date: 20090109
  Serious: Yes (Life-Threatening, Hospitalization)
  Sender: FDA-Public Use
  Company Number: 8032149

PATIENT
  Age: 41 Year
  Sex: Male
  Weight: 86 kg

DRUGS (15)
  1. KEPPRA [Suspect]
     Indication: CONVULSION PROPHYLAXIS
     Dosage: 750 MG 2/D IV
     Route: 042
     Dates: start: 20080414
  2. GENTAMICIN [Concomitant]
  3. REGULAR INSULIN [Concomitant]
  4. FENTANYL [Concomitant]
  5. DOCUSATE SODIUM [Concomitant]
  6. DECADRON [Concomitant]
  7. CEFTRIAXONE [Concomitant]
  8. SCOPOLAMINE [Concomitant]
  9. DUONEB [Concomitant]
  10. PEPCID [Concomitant]
  11. POTASSIUM CHLORIDE [Concomitant]
  12. DEXMEDETOMIDINE [Concomitant]
  13. SODIUM CHLORIDE 0.9% [Concomitant]
  14. LORAZEPAM [Concomitant]
  15. CHLORPROMAZINE [Concomitant]

REACTIONS (2)
  - CEREBRAL SALT-WASTING SYNDROME [None]
  - INAPPROPRIATE ANTIDIURETIC HORMONE SECRETION [None]
